FAERS Safety Report 6855089-7 (Version None)
Quarter: 2010Q3

REPORT INFORMATION
  Report Type: 
  Country: None (occurrence: None)
  Receive Date: 20100717
  Receipt Date: 20081024
  Transmission Date: 20110219
  Serious: No
  Sender: FDA-Public Use
  Company Number: US-PFIZER INC-2008003293

PATIENT
  Sex: Male

DRUGS (14)
  1. CHANTIX [Suspect]
  2. COUMADIN [Suspect]
  3. PRIMIDONE [Suspect]
  4. OXCARBAZEPINE [Concomitant]
  5. CARDIOVASCULAR SYSTEM DRUGS [Concomitant]
  6. LEVOTHYROXINE SODIUM [Concomitant]
  7. METOPROLOL [Concomitant]
  8. MONTELUKAST SODIUM [Concomitant]
  9. CALCIUM [Concomitant]
  10. VITAMIN C [Concomitant]
  11. VITAMIN D [Concomitant]
  12. LORTAB [Concomitant]
  13. OXYGEN [Concomitant]
  14. CORTICOSTEROID NOS [Concomitant]

REACTIONS (7)
  - DYSPNOEA [None]
  - EMPHYSEMA [None]
  - INTERVERTEBRAL DISC PROTRUSION [None]
  - OSTEOPOROSIS [None]
  - SCOLIOSIS [None]
  - SOMNOLENCE [None]
  - WEIGHT INCREASED [None]
